FAERS Safety Report 4495355-6 (Version None)
Quarter: 2004Q4

REPORT INFORMATION
  Report Type: 
  Country: None (occurrence: None)
  Receive Date: 20041103
  Receipt Date: 20041018
  Transmission Date: 20050328
  Serious: Yes (Hospitalization)
  Sender: FDA-Public Use
  Company Number: 210066

PATIENT
  Age: 40 Year
  Sex: Female

DRUGS (2)
  1. BEVACIZUMAB (BEVACIZUMAB) PWDR + SOLVENT, INFUSION SOLN, 100MG [Suspect]
     Indication: BREAST CANCER METASTATIC
     Dosage: 10 MG/KG, Q2W, INTRAVENOUS
     Route: 042
     Dates: start: 20031015
  2. PACLITAXEL [Suspect]
     Indication: BREAST CANCER METASTATIC
     Dosage: 90 MG/M2, 1/WEEK, INTRAVENOUS
     Route: 042
     Dates: start: 20031015

REACTIONS (2)
  - BLOOD CULTURE POSITIVE [None]
  - ILEUS [None]
